FAERS Safety Report 16086416 (Version 1)
Quarter: 2019Q1

REPORT INFORMATION
  Report Type: Spontaneous
  Country: US (occurrence: US)
  Receive Date: 20190318
  Receipt Date: 20190318
  Transmission Date: 20190418
  Serious: No
  Sender: FDA-Public Use
  Company Number: US-TAKEDA-2019TUS013754

PATIENT
  Age: 58 Year
  Sex: Female
  Weight: 71.2 kg

DRUGS (1)
  1. ENTYVIO [Suspect]
     Active Substance: VEDOLIZUMAB
     Indication: CROHN^S DISEASE
     Dosage: 300 MILLIGRAM
     Route: 042
     Dates: start: 20181227

REACTIONS (6)
  - Pain [Unknown]
  - Nasal congestion [Unknown]
  - Haemoptysis [Unknown]
  - Insomnia [Unknown]
  - C-reactive protein increased [Unknown]
  - Sinus pain [Unknown]

NARRATIVE: CASE EVENT DATE: 20190302
